FAERS Safety Report 19485315 (Version 1)
Quarter: 2021Q3

REPORT INFORMATION
  Report Type: Spontaneous
  Country: JP (occurrence: JP)
  Receive Date: 20210702
  Receipt Date: 20210702
  Transmission Date: 20211014
  Serious: Yes (Hospitalization, Other)
  Sender: FDA-Public Use
  Company Number: JP-JNJFOC-A-CH2018-179241

PATIENT
  Age: 49 Year
  Sex: Female
  Weight: 49 kg

DRUGS (9)
  1. OPSUMIT [Suspect]
     Active Substance: MACITENTAN
     Dosage: 10 MG, QD
     Route: 048
     Dates: start: 20180817, end: 20180913
  2. OXYGEN. [Concomitant]
     Active Substance: OXYGEN
     Route: 055
  3. ADCIRCA [Suspect]
     Active Substance: TADALAFIL
     Indication: PULMONARY ARTERIAL HYPERTENSION
     Dosage: 20 MG, QD
     Route: 048
     Dates: start: 20180914, end: 20180921
  4. OPSUMIT [Suspect]
     Active Substance: MACITENTAN
     Dosage: 10 MG, QD
     Route: 048
     Dates: start: 20190112
  5. UPTRAVI [Suspect]
     Active Substance: SELEXIPAG
     Dosage: DOSE UNKNOWN
     Route: 048
  6. ADCIRCA [Suspect]
     Active Substance: TADALAFIL
     Indication: PULMONARY ARTERIAL HYPERTENSION
     Dosage: 10 MG, QD
     Route: 048
     Dates: start: 20190208
  7. UPTRAVI [Suspect]
     Active Substance: SELEXIPAG
     Indication: PULMONARY ARTERIAL HYPERTENSION
     Dosage: 0.2?0.4MGX1?2TIMES A DAY
     Route: 048
     Dates: start: 20190706
  8. UPTRAVI [Suspect]
     Active Substance: SELEXIPAG
     Dosage: 0.4?0.6MG
     Route: 048
  9. OPSUMIT [Suspect]
     Active Substance: MACITENTAN
     Indication: PULMONARY ARTERIAL HYPERTENSION
     Dosage: 5 MG, QD
     Route: 048
     Dates: start: 20180914, end: 20190111

REACTIONS (6)
  - Transfusion [Unknown]
  - Pain in jaw [Recovering/Resolving]
  - Headache [Recovered/Resolved]
  - Anaemia [Recovering/Resolving]
  - Medication error [Unknown]
  - Iron deficiency anaemia [Recovering/Resolving]

NARRATIVE: CASE EVENT DATE: 20180914
